FAERS Safety Report 4816205-1 (Version None)
Quarter: 2005Q4

REPORT INFORMATION
  Report Type: 
  Country: None (occurrence: None)
  Receive Date: 20051026
  Receipt Date: 20051014
  Transmission Date: 20060501
  Serious: Yes (Hospitalization, Other)
  Sender: FDA-Public Use
  Company Number: SEWYE982716SEP05

PATIENT
  Age: 60 Year
  Sex: Male

DRUGS (3)
  1. RAPAMUNE [Suspect]
     Indication: PROPHYLAXIS AGAINST TRANSPLANT REJECTION
     Dosage: 10 MG 1X PER 1 DAY; ORAL
     Route: 048
     Dates: start: 20050901, end: 20050914
  2. MYCOPHENOLATE MOFETIL [Concomitant]
  3. MYCOPHENOLATE MOFETIL [Concomitant]

REACTIONS (3)
  - DRUG HYPERSENSITIVITY [None]
  - DRUG LEVEL DECREASED [None]
  - KIDNEY TRANSPLANT REJECTION [None]
